FAERS Safety Report 7475288-3 (Version None)
Quarter: 2011Q2

REPORT INFORMATION
  Report Type: 
  Country: None (occurrence: None)
  Receive Date: 20110512
  Receipt Date: 20110505
  Transmission Date: 20111010
  Serious: Yes (Death, Life-Threatening, Hospitalization)
  Sender: FDA-Public Use
  Company Number: US-CELGENEUS-163-21880-11042729

PATIENT
  Sex: Male

DRUGS (24)
  1. ASPIRIN [Concomitant]
     Dosage: 325 MILLIGRAM
     Route: 048
     Dates: start: 20110127
  2. MORPHINE [Concomitant]
     Dosage: 30 MILLIGRAM
     Route: 048
  3. SKELAXIN [Concomitant]
     Dosage: 800 MILLIGRAM
     Route: 065
  4. CALCIUM CALTRATE-D [Concomitant]
     Route: 065
  5. VITAMIN D [Concomitant]
     Dosage: 2000 IU (INTERNATIONAL UNIT)
     Route: 065
  6. NORCO [Concomitant]
     Indication: PAIN
     Dosage: 7.5 MILLIGRAM
     Route: 065
  7. CODEINE SULFATE [Concomitant]
     Route: 051
     Dates: start: 20110216
  8. CRESTOR [Concomitant]
     Dosage: 10 MILLIGRAM
     Route: 065
  9. MEGACE [Concomitant]
     Dosage: 200 MILLIGRAM
     Route: 048
  10. NITROGLYCERIN [Concomitant]
     Indication: CHEST PAIN
     Dosage: .4 MILLIGRAM
     Route: 060
  11. LANOXIN [Concomitant]
     Route: 051
     Dates: start: 20110216
  12. ROCEPHIN [Concomitant]
     Route: 065
     Dates: start: 20110216
  13. REVLIMID [Suspect]
     Indication: MULTIPLE MYELOMA
     Dosage: 25 MILLIGRAM
     Route: 048
     Dates: start: 20110127, end: 20110214
  14. MICAFUNGIN [Concomitant]
     Route: 065
     Dates: start: 20110304
  15. METAMUCIL-2 [Concomitant]
     Route: 065
  16. LISINOPRIL [Concomitant]
     Dosage: 20 MILLIGRAM
     Route: 065
  17. PLAVIX [Concomitant]
     Dosage: 75 MILLIGRAM
     Route: 048
  18. PROTONIX [Concomitant]
     Dosage: 40 MILLIGRAM
     Route: 065
  19. AVELOX [Concomitant]
     Route: 065
     Dates: start: 20110216
  20. VITAMIN B-12 [Concomitant]
     Route: 065
  21. MEGACE [Concomitant]
     Dosage: 400 MILLIGRAM
     Route: 048
  22. NEUPOGEN [Concomitant]
     Dosage: 300 MICROGRAM
     Route: 058
     Dates: start: 20110216, end: 20110218
  23. FORTAZ [Concomitant]
     Route: 065
     Dates: start: 20110304
  24. DEXAMETHASONE [Concomitant]
     Dosage: 4 MILLIGRAM
     Route: 065
     Dates: start: 20110127

REACTIONS (11)
  - DEEP VEIN THROMBOSIS [None]
  - PNEUMONIA [None]
  - URINARY TRACT INFECTION [None]
  - GASTROINTESTINAL HAEMORRHAGE [None]
  - NEUTROPENIA [None]
  - ATRIAL FIBRILLATION [None]
  - RENAL FAILURE ACUTE [None]
  - DEATH [None]
  - PULMONARY EMBOLISM [None]
  - RESPIRATORY FAILURE [None]
  - SEPSIS [None]
